FAERS Safety Report 18380077 (Version 19)
Quarter: 2025Q3

REPORT INFORMATION
  Report Type: Report from Study
  Country: US (occurrence: US)
  Receive Date: 20201014
  Receipt Date: 20250716
  Transmission Date: 20251021
  Serious: Yes (Other)
  Sender: TAKEDA
  Company Number: US-SHIRE-US202033392

PATIENT
  Age: 49 Year
  Sex: Female
  Weight: 91 kg

DRUGS (19)
  1. HUMAN IMMUNOGLOBULIN G [Suspect]
     Active Substance: HUMAN IMMUNOGLOBULIN G
     Indication: Immunodeficiency
  2. HUMAN IMMUNOGLOBULIN G [Suspect]
     Active Substance: HUMAN IMMUNOGLOBULIN G
     Dosage: 20 GRAM, 3/MONTH
  3. HUMAN IMMUNOGLOBULIN G [Suspect]
     Active Substance: HUMAN IMMUNOGLOBULIN G
  4. ACETAMINOPHEN [Concomitant]
     Active Substance: ACETAMINOPHEN
  5. HYDROCHLOROTHIAZIDE\TRIAMTERENE [Concomitant]
     Active Substance: HYDROCHLOROTHIAZIDE\TRIAMTERENE
  6. ADDERALL [Concomitant]
     Active Substance: AMPHETAMINE ASPARTATE\AMPHETAMINE SULFATE\DEXTROAMPHETAMINE SACCHARATE\DEXTROAMPHETAMINE SULFATE
  7. ZOFRAN [Concomitant]
     Active Substance: ONDANSETRON HYDROCHLORIDE
  8. VITAMIN C [Concomitant]
     Active Substance: ASCORBIC ACID
  9. POTASSIUM [Concomitant]
     Active Substance: POTASSIUM
  10. BUPROPION HYDROCHLORIDE [Concomitant]
     Active Substance: BUPROPION HYDROCHLORIDE
  11. METFORMIN HYDROCHLORIDE [Concomitant]
     Active Substance: METFORMIN HYDROCHLORIDE
  12. DIPHENHYDRAMINE HYDROCHLORIDE [Concomitant]
     Active Substance: DIPHENHYDRAMINE HYDROCHLORIDE
  13. Lmx [Concomitant]
  14. AMLODIPINE BESYLATE [Concomitant]
     Active Substance: AMLODIPINE BESYLATE
  15. LOSARTAN [Concomitant]
     Active Substance: LOSARTAN
  16. XYZAL [Concomitant]
     Active Substance: LEVOCETIRIZINE DIHYDROCHLORIDE
  17. EPINEPHRINE [Concomitant]
     Active Substance: EPINEPHRINE
  18. LOSARTAN POTASSIUM [Concomitant]
     Active Substance: LOSARTAN POTASSIUM
  19. DIPHENHYDRAMINE [Concomitant]
     Active Substance: DIPHENHYDRAMINE

REACTIONS (29)
  - Rotator cuff syndrome [Unknown]
  - Pneumonia [Not Recovered/Not Resolved]
  - Paronychia [Unknown]
  - COVID-19 [Recovered/Resolved]
  - Inflammation [Unknown]
  - Skin exfoliation [Unknown]
  - Dehydration [Unknown]
  - Nasopharyngitis [Not Recovered/Not Resolved]
  - Thermal burn [Unknown]
  - Seasonal allergy [Unknown]
  - Skin fissures [Unknown]
  - Staphylococcal infection [Unknown]
  - Retching [Unknown]
  - Norovirus infection [Unknown]
  - Product dose omission issue [Unknown]
  - Inappropriate schedule of product administration [Unknown]
  - Sinusitis [Not Recovered/Not Resolved]
  - Influenza [Not Recovered/Not Resolved]
  - Feeling abnormal [Unknown]
  - Infusion site reaction [Unknown]
  - Rash [Unknown]
  - Infusion site pruritus [Unknown]
  - Infusion site swelling [Unknown]
  - Erythema [Unknown]
  - Hypersensitivity [Unknown]
  - Infusion site pain [Unknown]
  - Fatigue [Unknown]
  - Headache [Unknown]
  - Nausea [Unknown]

NARRATIVE: CASE EVENT DATE: 20211228
